FAERS Safety Report 8303808-5 (Version None)
Quarter: 2012Q2

REPORT INFORMATION
  Report Type: 
  Country: None (occurrence: None)
  Receive Date: 20120423
  Receipt Date: 20120413
  Transmission Date: 20120825
  Serious: Yes (Other)
  Sender: FDA-Public Use
  Company Number: PHHY2012BE032548

PATIENT
  Age: 56 Year
  Sex: Male

DRUGS (4)
  1. LOSARTAN [Concomitant]
     Indication: HYPERTENSION
     Dosage: 50 MG,DAILY
  2. PRAVASTATIN [Concomitant]
     Indication: DYSLIPIDAEMIA
     Dosage: 20 MG, DAILY
  3. DICLOFENAC SODIUM [Suspect]
     Indication: PAIN IN EXTREMITY
     Dosage: 100 MG, BID
     Dates: start: 20110501
  4. CONTINUOUS POSITIVE AIRWAY PRESSURE [Concomitant]
     Indication: SLEEP APNOEA SYNDROME
     Dosage: 7 CM OVERNIGHT

REACTIONS (5)
  - PULMONARY OEDEMA [None]
  - DYSPNOEA [None]
  - HAEMOPTYSIS [None]
  - VARICOSE VEIN [None]
  - COUGH [None]
